FAERS Safety Report 23294272 (Version 1)
Quarter: 2023Q4

REPORT INFORMATION
  Report Type: Spontaneous
  Country: US (occurrence: None)
  Receive Date: 20231213
  Receipt Date: 20231213
  Transmission Date: 20240110
  Serious: No
  Sender: FDA-Public Use
  Company Number: None

PATIENT

DRUGS (1)
  1. TALTZ [Suspect]
     Active Substance: IXEKIZUMAB
     Indication: Psoriasis
     Dosage: 80MG SC??INJECT 1 PEN UNDER THE SKIN EVERY 2 WEEKS (WEEKS 4, 6, 8, 10) THEN STARTING AT WEEK 12, INJ
     Route: 058

REACTIONS (1)
  - Drug ineffective [None]
